FAERS Safety Report 8932497 (Version 1)
Quarter: 2012Q4

REPORT INFORMATION
  Report Type: Spontaneous
  Country: JP (occurrence: None)
  Receive Date: 20121120
  Receipt Date: 20121120
  Transmission Date: 20130627
  Serious: Yes (Other)
  Sender: FDA-Public Use
  Company Number: FK201203360

PATIENT
  Age: 18 Year
  Sex: Female

DRUGS (2)
  1. CYTARABINE [Suspect]
     Indication: NATURAL KILLER-CELL LEUKAEMIA
  2. CYCLOPHOSPHAMIDE [Suspect]

REACTIONS (10)
  - Cystitis haemorrhagic [None]
  - Acute myeloid leukaemia [None]
  - Chronic myeloid leukaemia [None]
  - Non-Hodgkin^s lymphoma [None]
  - Acute lymphocytic leukaemia [None]
  - Natural killer-cell leukaemia [None]
  - Myelodysplastic syndrome [None]
  - Adult T-cell lymphoma/leukaemia [None]
  - Plasma cell myeloma [None]
  - Renal failure acute [None]
